FAERS Safety Report 4552123-4 (Version None)
Quarter: 2005Q1

REPORT INFORMATION
  Report Type: 
  Country: None (occurrence: None)
  Receive Date: 20050112
  Receipt Date: 20041228
  Transmission Date: 20050727
  Serious: Yes (Hospitalization)
  Sender: FDA-Public Use
  Company Number: 2005000014

PATIENT
  Age: 63 Year
  Sex: Male

DRUGS (9)
  1. TARCEVA [Suspect]
     Indication: NON-SMALL CELL LUNG CANCER
     Dosage: 150 MG (QD), ORAL
     Route: 048
     Dates: start: 20041217
  2. OXYCOCET [Concomitant]
  3. EPOGEN [Concomitant]
  4. RABEPRAZOLE SODIUM [Concomitant]
  5. TRIAMCINOLONE ACETONIDE [Concomitant]
  6. ALBUTEROL [Concomitant]
  7. CEFUROXIME AXETIL [Concomitant]
  8. MEGESTROL ACETATE [Concomitant]
  9. CARBAMAZEPINE [Concomitant]

REACTIONS (4)
  - ASTHENIA [None]
  - DRUG LEVEL ABOVE THERAPEUTIC [None]
  - DYSPNOEA [None]
  - MENTAL STATUS CHANGES [None]
